FAERS Safety Report 8622749-7 (Version None)
Quarter: 2012Q3

REPORT INFORMATION
  Report Type: 
  Country: None (occurrence: None)
  Receive Date: 20120827
  Receipt Date: 20120820
  Transmission Date: 20120928
  Serious: Yes (Death)
  Sender: FDA-Public Use
  Company Number: FR-JNJFOC-20120809384

PATIENT
  Sex: Male

DRUGS (19)
  1. RISPERDAL [Concomitant]
     Indication: PRODUCT USED FOR UNKNOWN INDICATION
     Route: 048
  2. VALIUM [Concomitant]
     Route: 065
     Dates: start: 20110101
  3. LOXAPINE HCL [Suspect]
     Dosage: 100/50/50/100
     Route: 048
     Dates: start: 20120716
  4. TRIMEPRAZINE TARTRATE [Concomitant]
     Indication: PRODUCT USED FOR UNKNOWN INDICATION
     Route: 065
     Dates: start: 20120716
  5. RISPERDAL CONSTA [Suspect]
     Indication: PRODUCT USED FOR UNKNOWN INDICATION
     Route: 030
     Dates: start: 20110101, end: 20120702
  6. VALIUM [Concomitant]
     Route: 065
  7. VALIUM [Concomitant]
     Route: 065
     Dates: start: 20120715
  8. VALIUM [Concomitant]
     Indication: PRODUCT USED FOR UNKNOWN INDICATION
     Route: 065
     Dates: start: 20120723, end: 20120723
  9. VALIUM [Concomitant]
     Dosage: 20/20/20/30
     Route: 065
     Dates: start: 20120716
  10. LOXAPINE HCL [Suspect]
     Indication: PSYCHOTIC DISORDER
     Route: 048
     Dates: start: 20120715
  11. ZYPREXA [Suspect]
     Indication: PSYCHOTIC DISORDER
     Dosage: 10/20
     Route: 048
     Dates: start: 20120717
  12. ZYPREXA [Suspect]
     Route: 048
     Dates: start: 20120716
  13. ZYPREXA [Suspect]
     Route: 048
     Dates: end: 20120723
  14. LOXAPINE HCL [Suspect]
     Route: 048
     Dates: start: 20120723, end: 20120723
  15. AKINETON [Concomitant]
     Indication: PRODUCT USED FOR UNKNOWN INDICATION
     Route: 048
     Dates: start: 20120703
  16. TRANXENE [Concomitant]
     Indication: PRODUCT USED FOR UNKNOWN INDICATION
     Route: 065
  17. LOXAPINE HCL [Suspect]
     Route: 048
  18. VALIUM [Concomitant]
     Route: 065
     Dates: start: 20120714
  19. IMOVANE [Concomitant]
     Indication: PRODUCT USED FOR UNKNOWN INDICATION
     Route: 048
     Dates: start: 20120703

REACTIONS (1)
  - SUDDEN DEATH [None]
